FAERS Safety Report 14563900 (Version 1)
Quarter: 2018Q1

REPORT INFORMATION
  Report Type: Spontaneous
  Country: FR (occurrence: FR)
  Receive Date: 20180222
  Receipt Date: 20180222
  Transmission Date: 20180509
  Serious: Yes (Life-Threatening)
  Sender: FDA-Public Use
  Company Number: FR-MYLANLABS-2018M1011548

PATIENT
  Age: 63 Year
  Sex: Male
  Weight: 82 kg

DRUGS (10)
  1. CEFAZOLINE PANPHARMA [Suspect]
     Active Substance: CEFAZOLIN SODIUM
     Indication: INFECTION PROPHYLAXIS
     Route: 051
  2. ROPIVACAINE [Suspect]
     Active Substance: ROPIVACAINE
     Indication: ANAESTHESIA
     Dosage: UNK
     Route: 051
  3. SUFENTA [Suspect]
     Active Substance: SUFENTANIL CITRATE
     Indication: ANAESTHESIA
     Route: 051
  4. BETADINE [Suspect]
     Active Substance: POVIDONE-IODINE
     Indication: INFECTION PROPHYLAXIS
     Dosage: UNK
     Route: 003
  5. PROPOFOL FRESENIUS [Suspect]
     Active Substance: PROPOFOL
     Indication: ANAESTHESIA
     Route: 051
  6. CHLORHYDRATE DE METOCLOPRAMIDE RENAUDIN [Suspect]
     Active Substance: METOCLOPRAMIDE HYDROCHLORIDE
     Indication: INFECTION PROPHYLAXIS
     Dosage: UNK
     Route: 003
  7. KETAMINE PANPHARMA [Suspect]
     Active Substance: KETAMINE
     Indication: PERIOPERATIVE ANALGESIA
     Route: 042
  8. DEXAMETHASONE. [Suspect]
     Active Substance: DEXAMETHASONE
     Indication: SURGERY
     Dosage: UNK
     Route: 051
  9. PROFENID [Suspect]
     Active Substance: KETOPROFEN
     Indication: PERIOPERATIVE ANALGESIA
     Route: 042
  10. PARACETAMOL [Suspect]
     Active Substance: ACETAMINOPHEN
     Indication: PAIN
     Dosage: UNK

REACTIONS (1)
  - Anaphylactic reaction [Recovered/Resolved]

NARRATIVE: CASE EVENT DATE: 20171123
